FAERS Safety Report 7991268-3 (Version None)
Quarter: 2011Q4

REPORT INFORMATION
  Report Type: 
  Country: None (occurrence: None)
  Receive Date: 20111219
  Receipt Date: 20111213
  Transmission Date: 20120403
  Serious: Yes (Hospitalization, Disabling)
  Sender: FDA-Public Use
  Company Number: US-MERCK-1112USA01674

PATIENT
  Age: 65 Year
  Sex: Male

DRUGS (2)
  1. PRILOSEC [Concomitant]
     Route: 048
  2. JANUMET [Suspect]
     Indication: TYPE 2 DIABETES MELLITUS
     Route: 048
     Dates: end: 20111212

REACTIONS (3)
  - BILIARY COLIC [None]
  - OESOPHAGEAL SPASM [None]
  - PRESYNCOPE [None]
